FAERS Safety Report 23372366 (Version 1)
Quarter: 2024Q1

REPORT INFORMATION
  Report Type: Spontaneous
  Country: US (occurrence: US)
  Receive Date: 20240105
  Receipt Date: 20240105
  Transmission Date: 20240409
  Serious: No
  Sender: FDA-Public Use
  Company Number: US-COOPERSURGICAL, INC.-US-2022CPS004431

PATIENT
  Age: 40 Year
  Sex: Female
  Weight: 79.365 kg

DRUGS (1)
  1. PARAGARD T 380A [Suspect]
     Active Substance: COPPER
     Indication: Product used for unknown indication
     Dosage: UNK
     Route: 015
     Dates: start: 2015, end: 20221213

REACTIONS (4)
  - Complication associated with device [Recovered/Resolved]
  - Adnexa uteri pain [Unknown]
  - Device expulsion [Recovered/Resolved]
  - Abnormal uterine bleeding [Unknown]

NARRATIVE: CASE EVENT DATE: 20221115
